FAERS Safety Report 6004285-X (Version None)
Quarter: 2008Q4

REPORT INFORMATION
  Report Type: 
  Country: None (occurrence: None)
  Receive Date: 20081216
  Receipt Date: 20081205
  Transmission Date: 20090506
  Serious: Yes (Other)
  Sender: FDA-Public Use
  Company Number: US-BAYER-200814780BCC

PATIENT
  Age: 84 Year
  Sex: Female

DRUGS (1)
  1. ASPIRIN [Suspect]
     Indication: ARTHRALGIA

REACTIONS (2)
  - DYSPEPSIA [None]
  - GASTRIC ULCER [None]
